FAERS Safety Report 11844548 (Version 3)
Quarter: 2016Q1

REPORT INFORMATION
  Report Type: Spontaneous
  Country: DE (occurrence: DE)
  Receive Date: 20151217
  Receipt Date: 20160122
  Transmission Date: 20160526
  Serious: Yes (Hospitalization, Other)
  Sender: FDA-Public Use
  Company Number: DE-AMGEN-DEUSP2015133427

PATIENT
  Age: 57 Year
  Sex: Female
  Weight: 50 kg

DRUGS (4)
  1. VITAMIN D                          /00107901/ [Concomitant]
     Active Substance: ERGOCALCIFEROL
  2. PROLIA [Suspect]
     Active Substance: DENOSUMAB
     Indication: OSTEOPOROSIS
     Dosage: 60 MG, UNK
     Route: 065
     Dates: start: 201504
  3. PROBIOTIC                          /06395501/ [Concomitant]
     Active Substance: BIFIDOBACTERIUM ANIMALIS SUBSP. LACTIS
  4. CALCIUM [Concomitant]
     Active Substance: CALCIUM

REACTIONS (6)
  - Weight decreased [Unknown]
  - Liver function test abnormal [Unknown]
  - Endodontic procedure [Unknown]
  - Pharyngitis [Not Recovered/Not Resolved]
  - Secretion discharge [Unknown]
  - Choking [Not Recovered/Not Resolved]

NARRATIVE: CASE EVENT DATE: 20151026
